FAERS Safety Report 25478030 (Version 1)
Quarter: 2025Q2

REPORT INFORMATION
  Report Type: Spontaneous
  Country: GB (occurrence: None)
  Receive Date: 20250625
  Receipt Date: 20250625
  Transmission Date: 20250716
  Serious: Yes (Other)
  Sender: ORION
  Company Number: None

PATIENT
  Age: 52 Year

DRUGS (2)
  1. METHOTREXATE [Suspect]
     Active Substance: METHOTREXATE
     Indication: Product used for unknown indication
     Dates: start: 20250607
  2. METHOTREXATE [Suspect]
     Active Substance: METHOTREXATE
     Dates: start: 20250609

REACTIONS (3)
  - Accidental overdose [Unknown]
  - Inappropriate schedule of product administration [Unknown]
  - Illness [Recovered/Resolved]

NARRATIVE: CASE EVENT DATE: 20250607
